FAERS Safety Report 24090766 (Version 1)
Quarter: 2024Q3

REPORT INFORMATION
  Report Type: Spontaneous
  Country: US (occurrence: None)
  Receive Date: 20240712
  Receipt Date: 20240712
  Transmission Date: 20241016
  Serious: Yes (Other)
  Sender: Public
  Company Number: None

PATIENT
  Age: 62 Year
  Sex: Female
  Weight: 83.7 kg

DRUGS (2)
  1. OZEMPIC [Suspect]
     Active Substance: SEMAGLUTIDE
     Indication: Obesity
     Dosage: 1.7 MGMWEEKLY SUBCUTANEOUS ?
     Route: 058
     Dates: start: 20240401, end: 20240701
  2. WEGOVY [Suspect]
     Active Substance: SEMAGLUTIDE
     Dates: start: 20240401, end: 20240701

REACTIONS (2)
  - Paraesthesia [None]
  - Hyperaesthesia [None]

NARRATIVE: CASE EVENT DATE: 20240701
